FAERS Safety Report 9805384 (Version 1)
Quarter: 2014Q1

REPORT INFORMATION
  Report Type: Spontaneous
  Country: None (occurrence: None)
  Receive Date: 20140108
  Receipt Date: 20140108
  Transmission Date: 20141002
  Serious: Yes (Life-Threatening, Disabling, Other)
  Sender: FDA-Public Use
  Company Number: None

PATIENT
  Age: 18 Year
  Sex: Male
  Weight: 75 kg

DRUGS (1)
  1. ZATHRIN [Suspect]
     Dosage: 1 TAB DAILY FOR 5 DAYS
     Route: 048

REACTIONS (5)
  - Heart rate increased [None]
  - Anxiety [None]
  - Hypertension [None]
  - Phobia [None]
  - Chest pain [None]
